FAERS Safety Report 5842995-5 (Version None)
Quarter: 2008Q3

REPORT INFORMATION
  Report Type: 
  Country: None (occurrence: None)
  Receive Date: 20080813
  Receipt Date: 20080730
  Transmission Date: 20090109
  Serious: Yes (Death)
  Sender: FDA-Public Use
  Company Number: MX-ELI_LILLY_AND_COMPANY-MX200808000055

PATIENT
  Sex: Male

DRUGS (4)
  1. ALIMTA [Suspect]
     Indication: MESOTHELIOMA MALIGNANT
     Dosage: 500 MG, UNKNOWN
     Route: 065
  2. CARBOPLATIN [Concomitant]
     Dosage: 150 MG, UNKNOWN
     Route: 065
  3. PALONOSETRON [Concomitant]
     Dosage: 0.25 MG, UNKNOWN
     Route: 065
  4. EMEND [Concomitant]
     Dosage: UNK, UNKNOWN
     Route: 065

REACTIONS (1)
  - CARDIO-RESPIRATORY ARREST [None]
